FAERS Safety Report 8062854-X (Version None)
Quarter: 2012Q1

REPORT INFORMATION
  Report Type: 
  Country: None (occurrence: None)
  Receive Date: 20120123
  Receipt Date: 20120119
  Transmission Date: 20120608
  Serious: No
  Sender: FDA-Public Use
  Company Number: US-BAYER-2012-006601

PATIENT
  Age: 43 Year
  Sex: Female

DRUGS (1)
  1. CLIMARA [Suspect]
     Indication: OESTROGEN DEFICIENCY
     Dosage: UNK
     Route: 062
     Dates: start: 20080101

REACTIONS (1)
  - APPLICATION SITE REACTION [None]
